FAERS Safety Report 23891406 (Version 1)
Quarter: 2024Q2

REPORT INFORMATION
  Report Type: Spontaneous
  Country: US (occurrence: US)
  Receive Date: 20240523
  Receipt Date: 20240523
  Transmission Date: 20240715
  Serious: Yes (Other)
  Sender: FDA-Public Use
  Company Number: US-BAUSCHBL-2024BNL027300

PATIENT
  Age: 22 Year
  Sex: Female

DRUGS (1)
  1. DEXAMETHASONE [Suspect]
     Active Substance: DEXAMETHASONE
     Indication: Metastases to central nervous system
     Dosage: HIGH-DOSE
     Route: 065
     Dates: start: 202302, end: 2023

REACTIONS (1)
  - Positron emission tomogram abnormal [Recovered/Resolved]

NARRATIVE: CASE EVENT DATE: 20230401
